FAERS Safety Report 25362173 (Version 1)
Quarter: 2025Q2

REPORT INFORMATION
  Report Type: Spontaneous
  Country: US (occurrence: None)
  Receive Date: 20250523
  Receipt Date: 20250523
  Transmission Date: 20250716
  Serious: Yes (Hospitalization)
  Sender: FDA-CTU
  Company Number: None

PATIENT
  Age: 52 Year
  Sex: Male
  Weight: 63.45 kg

DRUGS (2)
  1. DALFAMPRIDINE [Suspect]
     Active Substance: DALFAMPRIDINE
     Indication: Multiple sclerosis
     Dosage: 10 MG DAILY ORAL ?
     Route: 048
     Dates: start: 20241124, end: 20250425
  2. OCREVUS [Concomitant]
     Active Substance: OCRELIZUMAB

REACTIONS (4)
  - Respiratory syncytial virus infection [None]
  - Pneumonia [None]
  - Sepsis [None]
  - Therapy interrupted [None]

NARRATIVE: CASE EVENT DATE: 20250425
